FAERS Safety Report 17673309 (Version 2)
Quarter: 2021Q1

REPORT INFORMATION
  Report Type: Spontaneous
  Country: US (occurrence: US)
  Receive Date: 20200416
  Receipt Date: 20210208
  Transmission Date: 20210419
  Serious: No
  Sender: FDA-Public Use
  Company Number: US-SHIRE-US202013520

PATIENT
  Age: 57 Year
  Sex: Male

DRUGS (8)
  1. GATTEX [Suspect]
     Active Substance: TEDUGLUTIDE\WATER
     Dosage: 0.915 INJECTION, QD
     Route: 058
     Dates: start: 20191029
  2. GATTEX [Suspect]
     Active Substance: TEDUGLUTIDE\WATER
     Dosage: 0.915 INJECTION, QD
     Route: 058
     Dates: start: 20191029
  3. GATTEX [Suspect]
     Active Substance: TEDUGLUTIDE\WATER
     Indication: PRODUCT USED FOR UNKNOWN INDICATION
     Dosage: (0.4100 UNITS UNKNOWN)
     Route: 058
     Dates: start: 20191029
  4. GATTEX [Suspect]
     Active Substance: TEDUGLUTIDE\WATER
     Dosage: 0.915 INJECTION, QD
     Route: 058
     Dates: start: 20191029
  5. GATTEX [Suspect]
     Active Substance: TEDUGLUTIDE\WATER
     Indication: PRODUCT USED FOR UNKNOWN INDICATION
     Dosage: (0.4100 UNITS UNKNOWN)
     Route: 058
     Dates: start: 20191029
  6. GATTEX [Suspect]
     Active Substance: TEDUGLUTIDE\WATER
     Indication: PRODUCT USED FOR UNKNOWN INDICATION
     Dosage: (0.4100 UNITS UNKNOWN)
     Route: 058
     Dates: start: 20191029
  7. GATTEX [Suspect]
     Active Substance: TEDUGLUTIDE\WATER
     Indication: PRODUCT USED FOR UNKNOWN INDICATION
     Dosage: (0.4100 UNITS UNKNOWN)
     Route: 058
     Dates: start: 20191029
  8. GATTEX [Suspect]
     Active Substance: TEDUGLUTIDE\WATER
     Dosage: 0.915 INJECTION, QD
     Route: 058
     Dates: start: 20191029

REACTIONS (1)
  - Renal cyst [Unknown]

NARRATIVE: CASE EVENT DATE: 20200325
